FAERS Safety Report 6636804-4 (Version None)
Quarter: 2010Q1

REPORT INFORMATION
  Report Type: 
  Country: None (occurrence: None)
  Receive Date: 20100311
  Receipt Date: 20100115
  Transmission Date: 20100710
  Serious: Yes (Hospitalization)
  Sender: FDA-Public Use
  Company Number: 54973 AE214

PATIENT
  Age: 4 Month
  Sex: Male
  Weight: 5.8968 kg

DRUGS (1)
  1. TEETHING TABLETS [Suspect]
     Indication: TEETHING
     Dosage: (BTL DISCARDED)

REACTIONS (3)
  - CYANOSIS [None]
  - FEELING ABNORMAL [None]
  - HYPOXIA [None]
